FAERS Safety Report 20597148 (Version 1)
Quarter: 2022Q1

REPORT INFORMATION
  Report Type: Spontaneous
  Country: CN (occurrence: CN)
  Receive Date: 20220315
  Receipt Date: 20220315
  Transmission Date: 20220423
  Serious: Yes (Other)
  Sender: FDA-Public Use
  Company Number: CN-PFIZER INC-202200364951

PATIENT
  Age: 18 Year
  Sex: Male
  Weight: 65 kg

DRUGS (2)
  1. METHYLPREDNISOLONE [Suspect]
     Active Substance: METHYLPREDNISOLONE
     Indication: Chronic sinusitis
     Dosage: 8 MG, 3X/DAY
     Route: 048
     Dates: start: 20220219, end: 20220228
  2. CLARITHROMYCIN [Suspect]
     Active Substance: CLARITHROMYCIN
     Indication: Chronic sinusitis
     Dosage: 0.25 G, 2X/DAY
     Route: 048
     Dates: start: 20220219, end: 20220228

REACTIONS (3)
  - Rash papular [Recovering/Resolving]
  - Rash pruritic [Recovering/Resolving]
  - Off label use [Recovered/Resolved]

NARRATIVE: CASE EVENT DATE: 20220219
